FAERS Safety Report 5643943-3 (Version None)
Quarter: 2008Q1

REPORT INFORMATION
  Report Type: 
  Country: None (occurrence: None)
  Receive Date: 20080226
  Receipt Date: 20080220
  Transmission Date: 20080703
  Serious: Yes (Hospitalization)
  Sender: FDA-Public Use
  Company Number: CHPA2008US03041

PATIENT
  Age: 43 Year
  Sex: Male

DRUGS (1)
  1. BUCKLEY'S CHEST CONGESTION(GUAIFENESIN) LIQUID [Suspect]
     Indication: NASOPHARYNGITIS
     Dosage: MORE THEN 6 TSP, 4-5 TIMES DAY, ORAL
     Route: 048
     Dates: start: 20080215

REACTIONS (2)
  - MYOCARDIAL INFARCTION [None]
  - OVERDOSE [None]
